FAERS Safety Report 11870663 (Version 1)
Quarter: 2015Q4

REPORT INFORMATION
  Report Type: Spontaneous
  Country: US (occurrence: None)
  Receive Date: 20151223
  Receipt Date: 20151223
  Transmission Date: 20160305
  Serious: No
  Sender: FDA-Public Use
  Company Number: None

PATIENT
  Age: 48 Year
  Sex: Male

DRUGS (10)
  1. XELJANZ [Suspect]
     Active Substance: TOFACITINIB CITRATE
     Indication: RHEUMATOID ARTHRITIS
     Route: 048
  2. FLAXSEED [Concomitant]
     Active Substance: FLAX SEED
  3. METHOTREXATE [Concomitant]
     Active Substance: METHOTREXATE
  4. BLEPHAMIDE [Concomitant]
     Active Substance: PREDNISOLONE ACETATE\SULFACETAMIDE SODIUM
  5. FOLIC ACD [Concomitant]
  6. PREDNISONE. [Concomitant]
     Active Substance: PREDNISONE
  7. MULTIVITAMIN [Concomitant]
     Active Substance: VITAMINS
  8. PROBOTIC [Concomitant]
     Active Substance: PROBIOTICS NOS
  9. ASA 81 [Concomitant]
  10. FISH OIL [Concomitant]
     Active Substance: FISH OIL

REACTIONS (1)
  - Sinusitis [None]

NARRATIVE: CASE EVENT DATE: 20151222
